FAERS Safety Report 8010511-8 (Version None)
Quarter: 2011Q4

REPORT INFORMATION
  Report Type: 
  Country: None (occurrence: None)
  Receive Date: 20111123
  Receipt Date: 20110728
  Transmission Date: 20120403
  Serious: No
  Sender: FDA-Public Use
  Company Number: 333995

PATIENT
  Age: 62 Year
  Sex: Female

DRUGS (1)
  1. VICTOZA [Suspect]
     Indication: TYPE 2 DIABETES MELLITUS

REACTIONS (5)
  - INCREASED APPETITE [None]
  - VOMITING [None]
  - ABDOMINAL DISTENSION [None]
  - IMPAIRED GASTRIC EMPTYING [None]
  - CONSTIPATION [None]
